FAERS Safety Report 7462352-8 (Version None)
Quarter: 2011Q2

REPORT INFORMATION
  Report Type: 
  Country: None (occurrence: None)
  Receive Date: 20110506
  Receipt Date: 20091122
  Transmission Date: 20111010
  Serious: Yes (Hospitalization, Other)
  Sender: FDA-Public Use
  Company Number: US-BAYER-200940576NA

PATIENT
  Age: 62 Year
  Sex: Male
  Weight: 136.5 kg

DRUGS (8)
  1. PROTAMINE SULFATE [Concomitant]
  2. ZOCOR [Concomitant]
     Dosage: 5 MG, UNK
  3. TRASYLOL [Suspect]
     Indication: CORONARY ARTERY BYPASS
     Route: 042
     Dates: start: 20050501
  4. ACETYLSALICYLIC ACID SRT [Concomitant]
     Dosage: 325 MG, QD
     Route: 048
  5. CEPHALEXIN [Concomitant]
     Dosage: UNK
     Dates: start: 20050616, end: 20050619
  6. LASIX [Concomitant]
     Dosage: 80 MG, QD
     Route: 048
  7. DILTIAZEM [Concomitant]
     Dosage: 240 MG, QD
     Route: 048
  8. VANCOMYCIN [Concomitant]
     Dosage: UNK
     Dates: start: 20050628

REACTIONS (11)
  - RENAL INJURY [None]
  - RENAL FAILURE [None]
  - PAIN [None]
  - INJURY [None]
  - RENAL IMPAIRMENT [None]
  - EMOTIONAL DISTRESS [None]
  - STRESS [None]
  - ANXIETY [None]
  - UNEVALUABLE EVENT [None]
  - ANHEDONIA [None]
  - FEAR [None]
